FAERS Safety Report 5778379-8 (Version None)
Quarter: 2008Q2

REPORT INFORMATION
  Report Type: 
  Country: None (occurrence: None)
  Receive Date: 20080619
  Receipt Date: 20080610
  Transmission Date: 20081010
  Serious: Yes (Disabling)
  Sender: FDA-Public Use
  Company Number: US-BAYER-200825415NA

PATIENT
  Sex: Male

DRUGS (2)
  1. CIPRO [Suspect]
     Indication: DRUG USE FOR UNKNOWN INDICATION
     Route: 048
  2. XANAX [Concomitant]
     Indication: ANXIETY

REACTIONS (6)
  - ANXIETY [None]
  - ASTHENIA [None]
  - LOSS OF EMPLOYMENT [None]
  - MULTIPLE CHEMICAL SENSITIVITY [None]
  - PANIC ATTACK [None]
  - TENDON PAIN [None]
